FAERS Safety Report 16893991 (Version 1)
Quarter: 2019Q4

REPORT INFORMATION
  Report Type: Report from Study
  Country: GB (occurrence: GB)
  Receive Date: 20191008
  Receipt Date: 20191008
  Transmission Date: 20200122
  Serious: Yes (Other)
  Sender: FDA-Public Use
  Company Number: GB-CELGENEUS-GBR-20191000920

PATIENT
  Age: 50 Year
  Sex: Female

DRUGS (1)
  1. OTEZLA [Suspect]
     Active Substance: APREMILAST
     Indication: PSORIASIS
     Dosage: 40 MILLIGRAM
     Route: 048

REACTIONS (4)
  - Dyspnoea [Unknown]
  - Asthma [Unknown]
  - Dizziness [Unknown]
  - Euphoric mood [Unknown]

NARRATIVE: CASE EVENT DATE: 20190930
